FAERS Safety Report 7658115-0 (Version None)
Quarter: 2011Q3

REPORT INFORMATION
  Report Type: 
  Country: None (occurrence: None)
  Receive Date: 20110805
  Receipt Date: 20110726
  Transmission Date: 20111222
  Serious: Yes (Other)
  Sender: FDA-Public Use
  Company Number: CA-JNJFOC-20110800331

PATIENT
  Sex: Female
  Weight: 97.1 kg

DRUGS (3)
  1. REMICADE [Suspect]
     Indication: CROHN'S DISEASE
     Route: 042
     Dates: start: 20091001
  2. TRIAZIDE [Concomitant]
  3. ESCITALOPRAM [Concomitant]

REACTIONS (1)
  - WEIGHT INCREASED [None]
